FAERS Safety Report 5813375-3 (Version None)
Quarter: 2008Q3

REPORT INFORMATION
  Report Type: 
  Country: None (occurrence: None)
  Receive Date: 20080717
  Receipt Date: 20080710
  Transmission Date: 20090109
  Serious: Yes (Hospitalization, Other)
  Sender: FDA-Public Use
  Company Number: US-ROCHE-558703

PATIENT
  Sex: Male

DRUGS (5)
  1. PEG-INTERFERON A-2A (RO 25-8310) [Suspect]
     Indication: HEPATITIS C
     Dosage: FORM: PFS STOPPED FOR TWO WEEKS
     Route: 065
     Dates: start: 20071015, end: 20080428
  2. PEG-INTERFERON A-2A (RO 25-8310) [Suspect]
     Route: 065
     Dates: start: 20080515
  3. RIBAVIRIN [Suspect]
     Indication: HEPATITIS C
     Dosage: STOPPED FOR TWO WEEKS
     Route: 065
     Dates: start: 20071015, end: 20080428
  4. RIBAVIRIN [Suspect]
     Dosage: MISSED RIBAVIRIN FOR TWO DAYS BECAUSE OF SURGERY ON 24 JUNE 2008.
     Route: 065
     Dates: start: 20080515
  5. PERCOCET [Concomitant]
     Indication: PAIN
     Dosage: FREQUENCY: EVERY SIX HOURS.

REACTIONS (5)
  - CHOLECYSTECTOMY [None]
  - DIABETES MELLITUS [None]
  - DIABETIC VASCULAR DISORDER [None]
  - HAEMATEMESIS [None]
  - SUICIDAL IDEATION [None]
